FAERS Safety Report 7498037-1 (Version None)
Quarter: 2011Q2

REPORT INFORMATION
  Report Type: 
  Country: None (occurrence: None)
  Receive Date: 20110524
  Receipt Date: 20110512
  Transmission Date: 20111010
  Serious: No
  Sender: FDA-Public Use
  Company Number: US-BIOGENIDEC-2011BI018018

PATIENT
  Sex: Male

DRUGS (1)
  1. TYSABRI [Suspect]
     Indication: MULTIPLE SCLEROSIS
     Route: 042
     Dates: start: 20101229, end: 20110228

REACTIONS (7)
  - WEIGHT DECREASED [None]
  - RESTLESSNESS [None]
  - URINARY INCONTINENCE [None]
  - GAIT DISTURBANCE [None]
  - INSOMNIA [None]
  - DIARRHOEA [None]
  - DRUG INEFFECTIVE [None]
